FAERS Safety Report 23909781 (Version 1)
Quarter: 2024Q2

REPORT INFORMATION
  Report Type: Spontaneous
  Country: PT (occurrence: PT)
  Receive Date: 20240528
  Receipt Date: 20240528
  Transmission Date: 20240716
  Serious: Yes (Other)
  Sender: FDA-Public Use
  Company Number: PT-INSUD PHARMA-2405PT04145

PATIENT

DRUGS (2)
  1. NUVESSA [Suspect]
     Active Substance: METRONIDAZOLE
     Indication: Diverticulitis
     Dosage: UNK
     Route: 065
  2. CIPROFLOXACIN [Suspect]
     Active Substance: CIPROFLOXACIN
     Indication: Diverticulitis
     Dosage: UNK
     Route: 065

REACTIONS (10)
  - Henoch-Schonlein purpura [Recovered/Resolved]
  - Cutaneous vasculitis [Recovered/Resolved]
  - Rash maculo-papular [Recovered/Resolved]
  - Purpura [Recovered/Resolved]
  - Abdominal pain [Recovered/Resolved]
  - Diarrhoea [Recovered/Resolved]
  - Vomiting [Recovered/Resolved]
  - Abdominal tenderness [Recovered/Resolved]
  - Leukocytosis [Recovered/Resolved]
  - Abdominal tenderness [Recovered/Resolved]
